FAERS Safety Report 8470704-2 (Version None)
Quarter: 2012Q2

REPORT INFORMATION
  Report Type: 
  Country: None (occurrence: None)
  Receive Date: 20120627
  Receipt Date: 20120619
  Transmission Date: 20120825
  Serious: Yes (Hospitalization, Other)
  Sender: FDA-Public Use
  Company Number: US-PFIZER INC-2012150957

PATIENT
  Sex: Female
  Weight: 57.143 kg

DRUGS (1)
  1. REVATIO [Suspect]
     Indication: RAYNAUD'S PHENOMENON
     Dosage: 20 MG, 2X/DAY
     Route: 048
     Dates: start: 20110101

REACTIONS (3)
  - CELLULITIS [None]
  - RAYNAUD'S PHENOMENON [None]
  - CARDIAC FAILURE CONGESTIVE [None]
